FAERS Safety Report 21541157 (Version 7)
Quarter: 2023Q1

REPORT INFORMATION
  Report Type: Report from Study
  Country: US (occurrence: US)
  Receive Date: 20221102
  Receipt Date: 20230320
  Transmission Date: 20230418
  Serious: No
  Sender: FDA-Public Use
  Company Number: US-002147023-NVSC2022US244339

PATIENT
  Age: 39 Year
  Sex: Female

DRUGS (1)
  1. KESIMPTA [Suspect]
     Active Substance: OFATUMUMAB
     Indication: Multiple sclerosis
     Dosage: 20 MG, QMO
     Route: 058
     Dates: start: 20221008

REACTIONS (16)
  - Bronchitis [Recovering/Resolving]
  - Pharyngitis streptococcal [Not Recovered/Not Resolved]
  - Candida infection [Unknown]
  - Pharyngeal ulceration [Unknown]
  - Sinusitis [Not Recovered/Not Resolved]
  - Phlebitis [Unknown]
  - Cough [Unknown]
  - Rhinorrhoea [Unknown]
  - Nasal congestion [Unknown]
  - Fatigue [Unknown]
  - Hypersomnia [Unknown]
  - Decreased appetite [Unknown]
  - Oligodipsia [Unknown]
  - Feeling abnormal [Unknown]
  - Headache [Unknown]
  - Vertigo [Unknown]

NARRATIVE: CASE EVENT DATE: 20221118
